FAERS Safety Report 11327952 (Version 1)
Quarter: 2015Q3

REPORT INFORMATION
  Report Type: Spontaneous
  Country: US (occurrence: US)
  Receive Date: 20150731
  Receipt Date: 20150731
  Transmission Date: 20151125
  Serious: No
  Sender: FDA-Public Use
  Company Number: US-TAKEDA-2015TUS009973

PATIENT
  Sex: Female
  Weight: 43.54 kg

DRUGS (4)
  1. VITAMIN B12 [Concomitant]
     Active Substance: CYANOCOBALAMIN
     Dosage: UNK
     Route: 048
  2. ENTYVIO [Suspect]
     Active Substance: VEDOLIZUMAB
     Indication: CROHN^S DISEASE
     Dosage: 300 MG, UNK
     Route: 065
     Dates: start: 201410, end: 20150224
  3. FIBER-CAPS [Concomitant]
     Dosage: UNK
     Route: 048
  4. FERRO-SEQUELS [Concomitant]
     Indication: BLOOD IRON
     Dosage: UNK
     Route: 048

REACTIONS (1)
  - Drug ineffective [Unknown]
